FAERS Safety Report 21943421 (Version 1)
Quarter: 2023Q1

REPORT INFORMATION
  Report Type: Spontaneous
  Country: IN (occurrence: IN)
  Receive Date: 20230202
  Receipt Date: 20230202
  Transmission Date: 20230417
  Serious: Yes (Other)
  Sender: FDA-Public Use
  Company Number: IN-MankindUS-000048

PATIENT
  Age: 65 Year
  Sex: Female

DRUGS (1)
  1. BACLOFEN [Suspect]
     Active Substance: BACLOFEN
     Indication: Hiccups
     Dosage: TAKEN FIVE TABLETS BY THAT TIME WHICH CAME TO A TOTAL OF 50 MG
     Route: 048

REACTIONS (2)
  - Frontotemporal dementia [Recovered/Resolved]
  - Neurotoxicity [Recovered/Resolved]
